FAERS Safety Report 5720282-3 (Version None)
Quarter: 2008Q2

REPORT INFORMATION
  Report Type: 
  Country: None (occurrence: None)
  Receive Date: 20080428
  Receipt Date: 20080414
  Transmission Date: 20081010
  Serious: Yes (Hospitalization)
  Sender: FDA-Public Use
  Company Number: FR-ROCHE-481479

PATIENT
  Sex: Female

DRUGS (10)
  1. PEGASYS [Suspect]
     Route: 058
     Dates: start: 20060810, end: 20070124
  2. RIBAVIRIN [Suspect]
     Route: 048
     Dates: start: 20060810, end: 20070124
  3. BLINDED THYMOSIN ALFA 1 [Suspect]
     Route: 058
     Dates: start: 20060810, end: 20070124
  4. BISOPRODOL FUMARATE [Concomitant]
     Indication: HYPERTENSION
     Route: 048
     Dates: start: 20050101
  5. BISOPRODOL FUMARATE [Concomitant]
     Route: 048
     Dates: start: 20050101
  6. MEDIATOR [Concomitant]
     Indication: HYPERLIPIDAEMIA
     Route: 048
     Dates: start: 20040101
  7. ROHYPNOL [Concomitant]
     Indication: INSOMNIA
     Route: 048
  8. TRIMEPRAZINE TAB [Concomitant]
     Dosage: GIVEN IN THE EVENING.
     Route: 048
  9. BUFLOMEDIL [Concomitant]
     Route: 048
  10. BENFLUOREX [Concomitant]

REACTIONS (2)
  - ATRIAL FIBRILLATION [None]
  - TRANSIENT ISCHAEMIC ATTACK [None]
